FAERS Safety Report 14199604 (Version 3)
Quarter: 2018Q3

REPORT INFORMATION
  Report Type: Report from Study
  Country: JP (occurrence: JP)
  Receive Date: 20171117
  Receipt Date: 20180905
  Transmission Date: 20181010
  Serious: Yes (Death, Hospitalization, Other)
  Sender: FDA-Public Use
  Company Number: JP-INCYTE CORPORATION-2017IN005036

PATIENT

DRUGS (11)
  1. REBAMIPIDE [Concomitant]
     Active Substance: REBAMIPIDE
     Indication: PRODUCT USED FOR UNKNOWN INDICATION
     Dosage: 100 MG, TID
     Route: 048
     Dates: start: 20140707
  2. BLOPRESS [Concomitant]
     Active Substance: CANDESARTAN CILEXETIL
     Indication: PRODUCT USED FOR UNKNOWN INDICATION
     Dosage: UNK
     Route: 065
  3. CALSLOT [Concomitant]
     Active Substance: MANIDIPINE HYDROCHLORIDE
     Indication: PRODUCT USED FOR UNKNOWN INDICATION
     Dosage: UNK
     Route: 065
  4. INDERAL [Concomitant]
     Active Substance: PROPRANOLOL HYDROCHLORIDE
     Indication: PRODUCT USED FOR UNKNOWN INDICATION
     Dosage: UNK
     Route: 065
  5. LANSOPRAZOLE. [Concomitant]
     Active Substance: LANSOPRAZOLE
     Indication: PRODUCT USED FOR UNKNOWN INDICATION
     Dosage: 15 MG, QD
     Route: 048
     Dates: start: 20140903
  6. BAYASPIRIN [Concomitant]
     Active Substance: ASPIRIN
     Indication: PRODUCT USED FOR UNKNOWN INDICATION
     Dosage: UNK
     Route: 065
  7. JAKAVI [Suspect]
     Active Substance: RUXOLITINIB
     Indication: PRIMARY MYELOFIBROSIS
     Dosage: 20 MG, BID
     Route: 048
     Dates: start: 20150205, end: 20150219
  8. EXJADE [Concomitant]
     Active Substance: DEFERASIROX
     Indication: PRODUCT USED FOR UNKNOWN INDICATION
     Dosage: 5 MG/KG, UNK
     Route: 048
     Dates: start: 20140605
  9. PRIMOBOLAN?DEPOT [Concomitant]
     Active Substance: METHENOLONE ENANTHATE
     Indication: PRIMARY MYELOFIBROSIS
     Dosage: 5 MG, TID
     Route: 048
     Dates: start: 20120910
  10. LAC?B [Concomitant]
     Active Substance: BIFIDOBACTERIUM SPP.
     Indication: PRODUCT USED FOR UNKNOWN INDICATION
     Dosage: 1 G, TID
     Route: 065
     Dates: start: 20141119
  11. ZYLORIC [Concomitant]
     Active Substance: ALLOPURINOL
     Indication: PRODUCT USED FOR UNKNOWN INDICATION
     Dosage: UNK
     Route: 065

REACTIONS (16)
  - Prostate cancer [Unknown]
  - Depressed level of consciousness [Fatal]
  - Fibrous dysplasia of bone [Unknown]
  - Splenomegaly [Unknown]
  - Primary myelofibrosis [Fatal]
  - Pleurisy [Fatal]
  - Tachypnoea [Fatal]
  - Adenocarcinoma [Unknown]
  - Hepatic function abnormal [Not Recovered/Not Resolved]
  - Hepatomegaly [Unknown]
  - Second primary malignancy [Unknown]
  - Hypoxia [Fatal]
  - Infectious pleural effusion [Fatal]
  - Tumour invasion [Unknown]
  - Pulmonary oedema [Fatal]
  - Pulmonary haemorrhage [Fatal]

NARRATIVE: CASE EVENT DATE: 20160707
